FAERS Safety Report 20011123 (Version 1)
Quarter: 2021Q4

REPORT INFORMATION
  Report Type: Spontaneous
  Country: US (occurrence: US)
  Receive Date: 20211029
  Receipt Date: 20211029
  Transmission Date: 20220303
  Serious: No
  Sender: FDA-Public Use
  Company Number: US-GSKCCFUS-CASE-01200705_AE-70287

PATIENT
  Age: 55 Year
  Sex: Female

DRUGS (2)
  1. FLOVENT DISKUS [Suspect]
     Active Substance: FLUTICASONE PROPIONATE
     Indication: Product used for unknown indication
     Dosage: UNK UNK, BID
     Route: 055
  2. FEXOFENADINE [Suspect]
     Active Substance: FEXOFENADINE HYDROCHLORIDE
     Indication: Product used for unknown indication
     Dosage: UNK
     Dates: start: 202110

REACTIONS (7)
  - Dyspnoea [Not Recovered/Not Resolved]
  - Paraesthesia oral [Unknown]
  - Hypoaesthesia oral [Unknown]
  - Lip swelling [Recovered/Resolved]
  - Swelling of eyelid [Recovered/Resolved]
  - Swelling face [Recovered/Resolved]
  - Underdose [Recovered/Resolved]

NARRATIVE: CASE EVENT DATE: 20211001
